FAERS Safety Report 7720690-5 (Version None)
Quarter: 2011Q3

REPORT INFORMATION
  Report Type: 
  Country: None (occurrence: None)
  Receive Date: 20110831
  Receipt Date: 20110825
  Transmission Date: 20111222
  Serious: Yes (Death)
  Sender: FDA-Public Use
  Company Number: PHHY2011FR04743

PATIENT
  Sex: Female
  Weight: 85 kg

DRUGS (2)
  1. IMATINIB MESYLATE [Suspect]
     Indication: MYELOID LEUKAEMIA
  2. IMATINIB MESYLATE [Suspect]
     Indication: CHRONIC MYELOID LEUKAEMIA
     Dosage: 400 MG, UNK
     Dates: start: 20041209

REACTIONS (1)
  - CHRONIC MYELOID LEUKAEMIA [None]
